FAERS Safety Report 18340409 (Version 1)
Quarter: 2020Q4

REPORT INFORMATION
  Report Type: Spontaneous
  Country: AU (occurrence: AU)
  Receive Date: 20201002
  Receipt Date: 20201002
  Transmission Date: 20210113
  Serious: Yes (Hospitalization, Other)
  Sender: FDA-Public Use
  Company Number: AU-BRISTOL-MYERS SQUIBB COMPANY-BMS-2020-078850

PATIENT
  Age: 64 Year
  Sex: Female

DRUGS (2)
  1. IPILIMUMAB [Suspect]
     Active Substance: IPILIMUMAB
     Indication: MALIGNANT MELANOMA
     Dosage: UNK
     Route: 065
     Dates: start: 202006
  2. NIVOLUMAB [Suspect]
     Active Substance: NIVOLUMAB
     Indication: MALIGNANT MELANOMA
     Dosage: INFORMATION UNAVAILABLE
     Route: 065
     Dates: start: 202006

REACTIONS (7)
  - Transaminases increased [Unknown]
  - Myalgia [Unknown]
  - Pyrexia [Recovered/Resolved]
  - Vision blurred [Unknown]
  - Headache [Recovered/Resolved]
  - Cytokine release syndrome [Unknown]
  - Oral candidiasis [Unknown]

NARRATIVE: CASE EVENT DATE: 202007
